FAERS Safety Report 12666959 (Version 1)
Quarter: 2016Q3

REPORT INFORMATION
  Report Type: Spontaneous
  Country: GB (occurrence: GB)
  Receive Date: 20160819
  Receipt Date: 20160819
  Transmission Date: 20161109
  Serious: Yes (Other)
  Sender: FDA-Public Use
  Company Number: GB-BAYER-2016-161434

PATIENT
  Age: 78 Year
  Sex: Male
  Weight: 73.2 kg

DRUGS (3)
  1. LORATADINE. [Suspect]
     Active Substance: LORATADINE
     Indication: LOCAL SWELLING
  2. LORATADINE. [Suspect]
     Active Substance: LORATADINE
     Indication: ARTHROPOD BITE
     Dosage: 10 MG, ONCE
     Dates: start: 20160808, end: 20160808
  3. LORATADINE. [Suspect]
     Active Substance: LORATADINE
     Indication: PRURITUS

REACTIONS (4)
  - Erythema [Not Recovered/Not Resolved]
  - Swelling face [Not Recovered/Not Resolved]
  - Loose tooth [Not Recovered/Not Resolved]
  - Eye swelling [Not Recovered/Not Resolved]

NARRATIVE: CASE EVENT DATE: 20160808
